FAERS Safety Report 10448334 (Version 1)
Quarter: 2014Q3

REPORT INFORMATION
  Report Type: Spontaneous
  Country: MX (occurrence: MX)
  Receive Date: 20140911
  Receipt Date: 20140911
  Transmission Date: 20150326
  Serious: Yes (Other)
  Sender: FDA-Public Use
  Company Number: PHHY2014MX117515

PATIENT
  Age: 70 Year
  Sex: Male

DRUGS (4)
  1. SINTROM [Suspect]
     Active Substance: ACENOCOUMAROL
     Dosage: 0.5 (4MG), UNK
     Dates: start: 201407
  2. SINTROM [Suspect]
     Active Substance: ACENOCOUMAROL
     Dosage: 0.75 (4MG), UNK
     Route: 048
     Dates: start: 201407
  3. SINTROM [Suspect]
     Active Substance: ACENOCOUMAROL
     Indication: CARDIOVASCULAR EVENT PROPHYLAXIS
     Dosage: 0.5 (4MG), DAILY
     Route: 048
     Dates: start: 20140501
  4. ONBREZ [Suspect]
     Active Substance: INDACATEROL
     Indication: CHRONIC OBSTRUCTIVE PULMONARY DISEASE
     Dosage: 300 UG, QD
     Route: 055
     Dates: start: 201403

REACTIONS (1)
  - Prostatic haemorrhage [Recovered/Resolved]

NARRATIVE: CASE EVENT DATE: 201407
